FAERS Safety Report 18079217 (Version 4)
Quarter: 2021Q3

REPORT INFORMATION
  Report Type: Report from Study
  Country: FR (occurrence: FR)
  Receive Date: 20200728
  Receipt Date: 20210802
  Transmission Date: 20211014
  Serious: Yes (Other)
  Sender: FDA-Public Use
  Company Number: FR-MYLANLABS-2020M1068037

PATIENT
  Age: 61 Year
  Sex: Male

DRUGS (2)
  1. AZACITIDINE. [Suspect]
     Active Substance: AZACITIDINE
     Indication: PRODUCT USED FOR UNKNOWN INDICATION
     Dosage: 35 MILLIGRAM/SQ. METER
     Route: 065
     Dates: start: 20200609, end: 20200803
  2. IDHIFA [Suspect]
     Active Substance: ENASIDENIB MESYLATE
     Indication: ACUTE MYELOID LEUKAEMIA
     Dosage: 100 MILLIGRAM, QD
     Route: 048
     Dates: start: 20190110, end: 20201223

REACTIONS (6)
  - Platelet disorder [Unknown]
  - Haematotoxicity [Recovered/Resolved]
  - Acute myeloid leukaemia [Unknown]
  - Haemoglobin abnormal [Unknown]
  - Therapeutic response decreased [Unknown]
  - Acute myeloid leukaemia recurrent [Recovered/Resolved]

NARRATIVE: CASE EVENT DATE: 20200602
